FAERS Safety Report 5249288-8 (Version None)
Quarter: 2007Q1

REPORT INFORMATION
  Report Type: 
  Country: None (occurrence: None)
  Receive Date: 20070223
  Receipt Date: 20070208
  Transmission Date: 20070707
  Serious: Yes (Other)
  Sender: FDA-Public Use
  Company Number: PHFR2007GB00762

PATIENT
  Age: 16 Year
  Sex: Male

DRUGS (5)
  1. MELLARIL [Suspect]
     Dates: start: 20001206
  2. DIAZEPAM [Suspect]
     Dates: start: 20001206
  3. PAROXETINE HYDROCHLORIDE [Suspect]
     Indication: AFFECTIVE DISORDER
     Dates: start: 20000801, end: 20010101
  4. CANNABIS [Concomitant]
  5. SERTRALINE [Concomitant]

REACTIONS (19)
  - ABNORMAL BEHAVIOUR [None]
  - AGGRESSION [None]
  - ANGER [None]
  - ANOREXIA [None]
  - ANXIETY [None]
  - COGNITIVE DISORDER [None]
  - CONDITION AGGRAVATED [None]
  - DEPRESSION [None]
  - DRUG ABUSER [None]
  - DRUG INEFFECTIVE [None]
  - DRUG WITHDRAWAL SYNDROME [None]
  - MEMORY IMPAIRMENT [None]
  - MOOD ALTERED [None]
  - NAUSEA [None]
  - OVERDOSE [None]
  - SUICIDE ATTEMPT [None]
  - TREATMENT NONCOMPLIANCE [None]
  - VERBAL ABUSE [None]
  - WEIGHT DECREASED [None]
